FAERS Safety Report 8589984-8 (Version None)
Quarter: 2012Q3

REPORT INFORMATION
  Report Type: 
  Country: None (occurrence: None)
  Receive Date: 20120813
  Receipt Date: 20120806
  Transmission Date: 20120928
  Serious: Yes (Other)
  Sender: FDA-Public Use
  Company Number: VE-ELI_LILLY_AND_COMPANY-VE201208002487

PATIENT

DRUGS (6)
  1. HUMALOG MIX 75/25 [Suspect]
     Dosage: 10 IU, BID
     Route: 064
     Dates: start: 20120701, end: 20120723
  2. ALDOMET [Concomitant]
     Route: 064
  3. HUMALOG MIX 75/25 [Suspect]
     Dosage: 10 IU, BID
     Route: 064
     Dates: start: 20120701, end: 20120723
  4. ALDOMET [Concomitant]
     Route: 064
  5. GLUCOPHAGE [Concomitant]
     Route: 064
  6. GLUCOPHAGE [Concomitant]
     Route: 064

REACTIONS (2)
  - FOETAL EXPOSURE DURING PREGNANCY [None]
  - PREMATURE BABY [None]
